FAERS Safety Report 8546095-5 (Version None)
Quarter: 2012Q3

REPORT INFORMATION
  Report Type: 
  Country: None (occurrence: None)
  Receive Date: 20120727
  Receipt Date: 20111209
  Transmission Date: 20120928
  Serious: No
  Sender: FDA-Public Use
  Company Number: US-ASTRAZENECA-2011SE74465

PATIENT
  Age: 56 Year
  Sex: Female

DRUGS (12)
  1. HYDROXYZINE [Concomitant]
  2. ESTRACE [Concomitant]
  3. CELEXA [Concomitant]
  4. LISINOPRIL [Concomitant]
  5. HYDROCHLOROTHIAZIDE [Concomitant]
  6. NASALTORT [Concomitant]
  7. WATER PILL [Concomitant]
  8. PROAIR HFA [Concomitant]
  9. TRAMADOL HYDROCHLORIDE [Concomitant]
     Indication: PAIN
  10. SEROQUEL [Suspect]
     Route: 048
  11. CINGULAR [Concomitant]
  12. ADVAIR DISKUS 100/50 [Concomitant]

REACTIONS (8)
  - FEELING ABNORMAL [None]
  - DRUG DOSE OMISSION [None]
  - INSOMNIA [None]
  - NIGHTMARE [None]
  - ANXIETY [None]
  - MENTAL IMPAIRMENT [None]
  - INAPPROPRIATE SCHEDULE OF DRUG ADMINISTRATION [None]
  - FATIGUE [None]
